FAERS Safety Report 8382208-6 (Version None)
Quarter: 2012Q2

REPORT INFORMATION
  Report Type: 
  Country: None (occurrence: None)
  Receive Date: 20120524
  Receipt Date: 20120521
  Transmission Date: 20120825
  Serious: No
  Sender: FDA-Public Use
  Company Number: US-PFIZER INC-2012123638

PATIENT
  Sex: Male
  Weight: 90.703 kg

DRUGS (3)
  1. VIAGRA [Suspect]
     Dosage: 100 MG, AS NEEDED
     Route: 048
  2. LEVOTHYROXINE [Concomitant]
     Indication: THYROID DISORDER
     Dosage: 137 UG, 1X/DAY
  3. VIAGRA [Suspect]
     Dosage: 25 MG, AS NEEDED
     Route: 048

REACTIONS (3)
  - HEADACHE [None]
  - DRUG INEFFECTIVE [None]
  - HYPOTENSION [None]
